FAERS Safety Report 7906452-4 (Version None)
Quarter: 2011Q4

REPORT INFORMATION
  Report Type: 
  Country: None (occurrence: None)
  Receive Date: 20111109
  Receipt Date: 20111109
  Transmission Date: 20120403
  Serious: Yes (Life-Threatening)
  Sender: FDA-Public Use
  Company Number: None

PATIENT

DRUGS (1)
  1. INHALANT ANTIGENS [Suspect]
     Indication: DYSPNOEA
     Dates: start: 20100201, end: 20111022

REACTIONS (1)
  - PNEUMONIA [None]
